FAERS Safety Report 6111814-4 (Version None)
Quarter: 2009Q1

REPORT INFORMATION
  Report Type: 
  Country: None (occurrence: None)
  Receive Date: 20090311
  Receipt Date: 20090303
  Transmission Date: 20090719
  Serious: Yes (Other)
  Sender: FDA-Public Use
  Company Number: US-ABBOTT-09P-163-0560579-00

PATIENT
  Sex: Female
  Weight: 108.96 kg

DRUGS (5)
  1. HUMIRA [Suspect]
     Indication: PSORIATIC ARTHROPATHY
     Dates: start: 20080501, end: 20080601
  2. HUMIRA [Suspect]
     Dates: start: 20080801, end: 20081116
  3. METHOTREXATE [Concomitant]
     Indication: PSORIATIC ARTHROPATHY
  4. LYRICA [Concomitant]
     Indication: FIBROMYALGIA
  5. INDOMETHACIN [Concomitant]
     Indication: PAIN MANAGEMENT

REACTIONS (3)
  - IMPAIRED HEALING [None]
  - INGUINAL HERNIA [None]
  - PNEUMONIA [None]
